FAERS Safety Report 10222958 (Version 1)
Quarter: 2014Q2

REPORT INFORMATION
  Report Type: Spontaneous
  Country: US (occurrence: US)
  Receive Date: 20140607
  Receipt Date: 20140607
  Transmission Date: 20141212
  Serious: No
  Sender: FDA-Public Use
  Company Number: US-LUNDBECK-DKLU1100015

PATIENT
  Age: 17 Year
  Sex: Female

DRUGS (1)
  1. SABRIL     (TABLET) [Suspect]
     Indication: TEMPORAL LOBE EPILEPSY
     Route: 048
     Dates: start: 20131205

REACTIONS (2)
  - Aggression [Not Recovered/Not Resolved]
  - Weight increased [Not Recovered/Not Resolved]
